FAERS Safety Report 24060188 (Version 1)
Quarter: 2024Q3

REPORT INFORMATION
  Report Type: Spontaneous
  Country: CA (occurrence: CA)
  Receive Date: 20240708
  Receipt Date: 20240708
  Transmission Date: 20241016
  Serious: Yes (Disabling, Other)
  Sender: BRISTOL MYERS SQUIBB
  Company Number: CA-BRISTOL-MYERS SQUIBB COMPANY-2024-104481

PATIENT
  Age: 74 Year
  Sex: Male
  Weight: 81 kg

DRUGS (2)
  1. OPDIVO [Suspect]
     Active Substance: NIVOLUMAB
     Indication: Product used for unknown indication
     Dosage: OPDIVO 40MG/4ML (SINGLE-USE VIAL)
     Route: 042
  2. YERVOY [Suspect]
     Active Substance: IPILIMUMAB
     Indication: Product used for unknown indication
     Dosage: 50MG/10ML AND 200MG/40 ML SINGLE USE VIALS
     Route: 042

REACTIONS (3)
  - Arterial occlusive disease [Not Recovered/Not Resolved]
  - Blindness [Not Recovered/Not Resolved]
  - Adverse event [Not Recovered/Not Resolved]
